FAERS Safety Report 19041441 (Version 1)
Quarter: 2021Q1

REPORT INFORMATION
  Report Type: Spontaneous
  Country: ES (occurrence: ES)
  Receive Date: 20210322
  Receipt Date: 20210322
  Transmission Date: 20210420
  Serious: Yes (Hospitalization)
  Sender: FDA-Public Use
  Company Number: ES-ELI_LILLY_AND_COMPANY-ES202103005539

PATIENT
  Age: 61 Year
  Sex: Male

DRUGS (5)
  1. LORAZEPAM. [Interacting]
     Active Substance: LORAZEPAM
     Indication: SUICIDE ATTEMPT
     Dosage: UNK UNK, UNKNOWN
     Route: 048
     Dates: start: 20210116, end: 20210116
  2. DIAZEPAM. [Interacting]
     Active Substance: DIAZEPAM
     Indication: SUICIDE ATTEMPT
     Dosage: 60 MG, TOTAL (12 CPS)
     Route: 048
     Dates: start: 20210116, end: 20210116
  3. DULOXETINE HYDROCHLORIDE. [Suspect]
     Active Substance: DULOXETINE HYDROCHLORIDE
     Indication: SUICIDE ATTEMPT
     Dosage: 600 MG, TOTAL (10 CPS)
     Route: 048
     Dates: start: 20210116, end: 20210116
  4. BUPROPION. [Interacting]
     Active Substance: BUPROPION
     Indication: SUICIDE ATTEMPT
     Dosage: UNK UNK, UNKNOWN
     Route: 048
     Dates: start: 20210116, end: 20210116
  5. TOPIRAMATO [Interacting]
     Active Substance: TOPIRAMATE
     Indication: SUICIDE ATTEMPT
     Dosage: 500 MG, TOTAL (5 CPS)
     Route: 048
     Dates: start: 20210116, end: 20210116

REACTIONS (7)
  - Drug interaction [Recovered/Resolved]
  - Depressed level of consciousness [Recovered/Resolved]
  - Intentional overdose [Recovered/Resolved]
  - Slow speech [Recovered/Resolved]
  - Disorientation [Recovered/Resolved]
  - Rhabdomyolysis [Recovered/Resolved]
  - Bradyphrenia [Recovered/Resolved]

NARRATIVE: CASE EVENT DATE: 20210116
